FAERS Safety Report 9173712 (Version 2)
Quarter: 2013Q4

REPORT INFORMATION
  Report Type: Report from Study
  Country: JP (occurrence: JP)
  Receive Date: 20130320
  Receipt Date: 20131008
  Transmission Date: 20140711
  Serious: Yes (Hospitalization, Other)
  Sender: FDA-Public Use
  Company Number: JP-ASTELLAS-2013US002955

PATIENT
  Age: 76 Year
  Sex: Male

DRUGS (23)
  1. ERLOTINIB TABLET [Suspect]
     Indication: ADENOCARCINOMA PANCREAS
     Dosage: 100 MG, UID/QD
     Route: 048
     Dates: start: 20120802, end: 20120821
  2. GEMCITABINE HYDROCHLORIDE [Suspect]
     Indication: ADENOCARCINOMA PANCREAS
     Dosage: 1000 MG/M2, UID/QD
     Route: 042
     Dates: start: 20120802, end: 20120802
  3. GEMCITABINE HYDROCHLORIDE [Suspect]
     Dosage: 1000 MG/M2, UID/QD
     Route: 042
     Dates: start: 20120809, end: 20120809
  4. GEMCITABINE HYDROCHLORIDE [Suspect]
     Dosage: 1000 MG/M2, UID/QD
     Route: 042
     Dates: start: 20120828, end: 20120828
  5. GEMCITABINE HYDROCHLORIDE [Suspect]
     Dosage: 1000 MG/M2, UID/QD
     Route: 042
     Dates: start: 20120904, end: 20120904
  6. GEMCITABINE HYDROCHLORIDE [Suspect]
     Dosage: 1000 MG/M2, UID/QD
     Route: 042
     Dates: start: 20120911, end: 20120911
  7. GEMCITABINE HYDROCHLORIDE [Suspect]
     Dosage: 1000 MG/M2, UID/QD
     Route: 042
     Dates: start: 20120925
  8. ACTOS [Concomitant]
     Indication: PRODUCT USED FOR UNKNOWN INDICATION
     Dosage: 15 MG, UID/QD
     Route: 048
  9. AMARYL [Concomitant]
     Indication: PRODUCT USED FOR UNKNOWN INDICATION
     Dosage: 3 MG, UID/QD
     Route: 048
  10. PAXIL [Concomitant]
     Indication: PRODUCT USED FOR UNKNOWN INDICATION
     Dosage: 20 MG, UID/QD
     Route: 048
  11. SOLANAX [Concomitant]
     Indication: PRODUCT USED FOR UNKNOWN INDICATION
     Dosage: 0.8 MG, UID/QD
     Route: 048
  12. SEIBULE [Concomitant]
     Indication: PRODUCT USED FOR UNKNOWN INDICATION
     Dosage: 150 MG, UID/QD
     Route: 048
  13. KETAS [Concomitant]
     Indication: PRODUCT USED FOR UNKNOWN INDICATION
     Dosage: 30 MG, UID/QD
     Route: 048
  14. LENDORMIN [Concomitant]
     Indication: PRODUCT USED FOR UNKNOWN INDICATION
     Dosage: 0.25 MG, UID/QD
     Route: 048
  15. LIPITOR [Concomitant]
     Indication: PRODUCT USED FOR UNKNOWN INDICATION
     Dosage: 5 MG, UID/QD
     Route: 048
  16. TAMSULOSIN [Concomitant]
     Indication: PRODUCT USED FOR UNKNOWN INDICATION
     Dosage: 0.2 MG, UID/QD
     Route: 048
  17. UBRETID [Concomitant]
     Indication: PRODUCT USED FOR UNKNOWN INDICATION
     Dosage: 5 MG, UID/QD
     Route: 048
  18. MIDODRINE HYDROCHLORIDE [Concomitant]
     Indication: PRODUCT USED FOR UNKNOWN INDICATION
     Dosage: 4 MG, UID/QD
     Route: 048
  19. EFFORTIL [Concomitant]
     Indication: PRODUCT USED FOR UNKNOWN INDICATION
     Dosage: 10 MG, UID/QD
     Route: 048
  20. BAYASPIRIN [Concomitant]
     Indication: PRODUCT USED FOR UNKNOWN INDICATION
     Dosage: 100 MG, UID/QD
     Route: 048
  21. PANCRELIPASE [Concomitant]
     Indication: PRODUCT USED FOR UNKNOWN INDICATION
     Dosage: 6 DF, UID/QD
     Route: 048
     Dates: start: 20120821
  22. MUCOSTA [Concomitant]
     Indication: PRODUCT USED FOR UNKNOWN INDICATION
     Dosage: 300 MG, UID/QD
     Route: 048
     Dates: start: 20120821, end: 20120911
  23. FAMOTIDINE [Concomitant]
     Indication: PRODUCT USED FOR UNKNOWN INDICATION
     Dosage: 40 MG, UID/QD
     Route: 048
     Dates: start: 20120821

REACTIONS (6)
  - White blood cell count decreased [Recovered/Resolved]
  - Platelet count decreased [Recovered/Resolved]
  - Neutrophil count decreased [Recovered/Resolved]
  - Haemoglobin decreased [Not Recovered/Not Resolved]
  - Interstitial lung disease [Recovering/Resolving]
  - Rash [Recovered/Resolved]
